FAERS Safety Report 5713878-6 (Version None)
Quarter: 2008Q2

REPORT INFORMATION
  Report Type: 
  Country: None (occurrence: None)
  Receive Date: 20080421
  Receipt Date: 20080407
  Transmission Date: 20081010
  Serious: Yes (Death, Life-Threatening, Hospitalization)
  Sender: FDA-Public Use
  Company Number: A-CH2008-20157

PATIENT
  Age: 20 Year
  Sex: Female
  Weight: 47 kg

DRUGS (2)
  1. TRACLEER [Suspect]
     Indication: PULMONARY HYPERTENSION
     Dosage: 125 MG, BID, ORAL; 62.5 MG, BID, ORAL
     Route: 048
     Dates: start: 20060523, end: 20060622
  2. TRACLEER [Suspect]
     Indication: PULMONARY HYPERTENSION
     Dosage: 125 MG, BID, ORAL; 62.5 MG, BID, ORAL
     Route: 048
     Dates: start: 20060623, end: 20071226

REACTIONS (5)
  - CARDIAC ARREST [None]
  - MULTI-ORGAN FAILURE [None]
  - PERICARDITIS [None]
  - RIGHT VENTRICULAR FAILURE [None]
  - SYNCOPE [None]
